FAERS Safety Report 16570393 (Version 1)
Quarter: 2019Q3

REPORT INFORMATION
  Report Type: Spontaneous
  Country: FR (occurrence: FR)
  Receive Date: 20190715
  Receipt Date: 20190715
  Transmission Date: 20191004
  Serious: Yes (Hospitalization)
  Sender: FDA-Public Use
  Company Number: FR-ACCORD-138354

PATIENT
  Sex: Female
  Weight: 43 kg

DRUGS (13)
  1. TYVERB [Concomitant]
     Active Substance: LAPATINIB
     Indication: BREAST CANCER METASTATIC
     Dosage: 250 MG FILM-COATED TABLETS
     Route: 048
     Dates: start: 201101, end: 201112
  2. TRIATEC [Concomitant]
     Indication: HYPERTENSION
     Dosage: 5 MG, DRY TABLET
     Route: 048
  3. NITRIDERM [Concomitant]
     Active Substance: NITROGLYCERIN
     Indication: PRODUCT USED FOR UNKNOWN INDICATION
     Dosage: TTS 10 MG / 24 H TRANSDERMAL PATCH
     Route: 062
  4. KARDEGIC [Concomitant]
     Active Substance: ASPIRIN DL-LYSINE
     Indication: PRODUCT USED FOR UNKNOWN INDICATION
     Dosage: 75 MG POWDER FOR ORAL SOLUTION IN SACHET-DOSE
     Route: 048
  5. CARDENSIEL [Concomitant]
     Active Substance: BISOPROLOL FUMARATE
     Indication: HYPERTENSION
     Dosage: 10 MG FILM-COATED TABLETS
     Route: 048
  6. CHERRY. [Concomitant]
     Active Substance: CHERRY
     Indication: PRODUCT USED FOR UNKNOWN INDICATION
     Dosage: 20 MG, COATED TABLET
     Route: 048
  7. DOCETAXEL. [Suspect]
     Active Substance: DOCETAXEL
     Indication: BREAST CANCER METASTATIC
     Dosage: ALSO RECEIVED FROM APR-2016 TO AUG-2016
     Route: 042
     Dates: start: 201604, end: 201608
  8. DOCETAXEL. [Suspect]
     Active Substance: DOCETAXEL
     Indication: BREAST CANCER METASTATIC
     Dosage: ALSO RECEIVED FROM APR-2016 TO AUG-2016
     Route: 042
     Dates: start: 201101, end: 201112
  9. HERCEPTIN [Suspect]
     Active Substance: TRASTUZUMAB
     Indication: BREAST CANCER METASTATIC
     Dosage: 24 TREATMENTS
     Route: 042
     Dates: start: 201112
  10. PARIET [Concomitant]
     Active Substance: RABEPRAZOLE SODIUM
     Indication: PRODUCT USED FOR UNKNOWN INDICATION
     Route: 048
  11. PROCORALAN [Concomitant]
     Active Substance: IVABRADINE
     Indication: HYPERTENSION
     Dosage: 5 MG FILM-COATED TABLETS
     Route: 048
  12. TAXOL [Suspect]
     Active Substance: PACLITAXEL
     Indication: BREAST CANCER METASTATIC
     Route: 042
     Dates: start: 201112, end: 201209
  13. PERJETA [Concomitant]
     Active Substance: PERTUZUMAB
     Indication: BREAST CANCER METASTATIC
     Dosage: 420 MG CONCENTRATE FOR SOLUTION FOR INFUSION
     Dates: start: 201604

REACTIONS (2)
  - Neuropathy peripheral [Not Recovered/Not Resolved]
  - Cerebellar syndrome [Not Recovered/Not Resolved]

NARRATIVE: CASE EVENT DATE: 201209
